FAERS Safety Report 8110238-8 (Version None)
Quarter: 2012Q1

REPORT INFORMATION
  Report Type: 
  Country: None (occurrence: None)
  Receive Date: 20120202
  Receipt Date: 20120130
  Transmission Date: 20120608
  Serious: No
  Sender: FDA-Public Use
  Company Number: US-AMGEN-USASP2012006176

PATIENT
  Sex: Male

DRUGS (2)
  1. ENBREL [Suspect]
     Indication: PSORIATIC ARTHROPATHY
  2. ENBREL [Suspect]
     Indication: PSORIASIS
     Dosage: 50 MG, QWK
     Dates: start: 20091025, end: 20100101

REACTIONS (10)
  - JOINT SWELLING [None]
  - MUSCULOSKELETAL STIFFNESS [None]
  - OEDEMA PERIPHERAL [None]
  - JOINT STIFFNESS [None]
  - BACK PAIN [None]
  - PAIN IN EXTREMITY [None]
  - GAIT DISTURBANCE [None]
  - INJECTION SITE PAIN [None]
  - SKIN EXFOLIATION [None]
  - ARTHRALGIA [None]
